FAERS Safety Report 25913093 (Version 1)
Quarter: 2025Q4

REPORT INFORMATION
  Report Type: Spontaneous
  Country: US (occurrence: US)
  Receive Date: 20251013
  Receipt Date: 20251013
  Transmission Date: 20260119
  Serious: Yes (Hospitalization)
  Sender: ROCHE
  Company Number: US-ROCHE-10000407172

PATIENT
  Age: 74 Year
  Sex: Female

DRUGS (9)
  1. ATEZOLIZUMAB [Suspect]
     Active Substance: ATEZOLIZUMAB
     Indication: Invasive ductal breast carcinoma
     Route: 065
  2. DOXORUBICIN HYDROCHLORIDE [Concomitant]
     Active Substance: DOXORUBICIN HYDROCHLORIDE
  3. CYCLOPHOSPHAMIDE [Concomitant]
     Active Substance: CYCLOPHOSPHAMIDE
  4. PACLITAXEL [Concomitant]
     Active Substance: PACLITAXEL
  5. DILTIAZEM [Concomitant]
     Active Substance: DILTIAZEM
  6. METOPROLOL [Concomitant]
     Active Substance: METOPROLOL
  7. WARFARIN [Concomitant]
     Active Substance: WARFARIN
  8. PREDNISONE [Concomitant]
     Active Substance: PREDNISONE
  9. CEFEPIME [Concomitant]
     Active Substance: CEFEPIME HYDROCHLORIDE
     Route: 042

REACTIONS (1)
  - Type 1 diabetes mellitus [Unknown]
